FAERS Safety Report 19395838 (Version 2)
Quarter: 2021Q3

REPORT INFORMATION
  Report Type: Spontaneous
  Country: DE (occurrence: DE)
  Receive Date: 20210609
  Receipt Date: 20210712
  Transmission Date: 20211014
  Serious: Yes (Hospitalization, Other)
  Sender: FDA-Public Use
  Company Number: DE-GILEAD-2021-0535000

PATIENT
  Age: 83 Year
  Sex: Female

DRUGS (13)
  1. ACETYLSALICYLIC ACID [Suspect]
     Active Substance: ASPIRIN
     Indication: PRODUCT USED FOR UNKNOWN INDICATION
     Route: 048
  2. SPIRONOLACTONE. [Suspect]
     Active Substance: SPIRONOLACTONE
     Indication: PRODUCT USED FOR UNKNOWN INDICATION
     Dosage: 50 MG, 0.5?0?0?0
     Route: 048
  3. METOPROLOL HEMI?(R,R)?TARTRATE [Concomitant]
     Dosage: 47.5 MG
     Route: 048
  4. SPIRONOLACTONE. [Suspect]
     Active Substance: SPIRONOLACTONE
     Dosage: 50 MG, 0.5?0?0?0
     Route: 048
  5. PANTOPRAZOLE [Concomitant]
     Active Substance: PANTOPRAZOLE
     Route: 048
  6. PANTOPRAZOLE [Concomitant]
     Active Substance: PANTOPRAZOLE
     Dosage: 40 MG
     Route: 048
  7. METOPROLOL TARTRATE. [Concomitant]
     Active Substance: METOPROLOL TARTRATE
     Route: 048
  8. ENALAPRIL MALEATE. [Suspect]
     Active Substance: ENALAPRIL MALEATE
     Dosage: 20 MG
     Route: 048
  9. ACETYLSALICYLIC ACID [Suspect]
     Active Substance: ASPIRIN
     Dosage: 100 MG
     Route: 048
  10. PRAMIPEXOLE. [Concomitant]
     Active Substance: PRAMIPEXOLE
     Route: 048
  11. RANEXA [Suspect]
     Active Substance: RANOLAZINE
     Indication: PRODUCT USED FOR UNKNOWN INDICATION
     Route: 048
  12. TORASEMIDE [Suspect]
     Active Substance: TORSEMIDE
     Indication: PRODUCT USED FOR UNKNOWN INDICATION
     Route: 048
  13. ENALAPRIL MALEATE. [Suspect]
     Active Substance: ENALAPRIL MALEATE
     Indication: PRODUCT USED FOR UNKNOWN INDICATION
     Route: 048

REACTIONS (3)
  - Peripheral swelling [Recovering/Resolving]
  - Dyspnoea exertional [Recovering/Resolving]
  - Dyspnoea [Recovering/Resolving]
